FAERS Safety Report 17729224 (Version 1)
Quarter: 2020Q2

REPORT INFORMATION
  Report Type: Spontaneous
  Country: JP (occurrence: JP)
  Receive Date: 20200430
  Receipt Date: 20200430
  Transmission Date: 20200714
  Serious: Yes (Other)
  Sender: FDA-Public Use
  Company Number: NVSC2020JP114969

PATIENT
  Age: 78 Year
  Sex: Female

DRUGS (1)
  1. SECUKINUMAB. [Suspect]
     Active Substance: SECUKINUMAB
     Indication: PSORIASIS
     Dosage: UNK UNK, QMO
     Route: 065

REACTIONS (4)
  - Musculoskeletal discomfort [Recovered/Resolved]
  - Goitre [Recovered/Resolved]
  - Influenza like illness [Recovered/Resolved]
  - Thyroiditis subacute [Recovered/Resolved]
